FAERS Safety Report 9714111 (Version 2)
Quarter: 2013Q4

REPORT INFORMATION
  Report Type: Spontaneous
  Country: US (occurrence: US)
  Receive Date: 20131126
  Receipt Date: 20131126
  Transmission Date: 20140711
  Serious: No
  Sender: FDA-Public Use
  Company Number: US-GILEAD-2008-0018205

PATIENT
  Age: 79 Year
  Sex: Female
  Weight: 77.11 kg

DRUGS (12)
  1. LETAIRIS [Suspect]
     Indication: PULMONARY HYPERTENSION
     Route: 048
     Dates: end: 20081027
  2. LETAIRIS [Suspect]
     Route: 048
  3. LETAIRIS [Suspect]
     Route: 048
     Dates: start: 20080829
  4. ATENOLOL [Concomitant]
  5. INDAPAMIDE [Concomitant]
  6. LISINOPRIL [Concomitant]
  7. ADALAT CC [Concomitant]
  8. TRICOR [Concomitant]
  9. ZETIA [Concomitant]
  10. LEVOTHYROXIN [Concomitant]
  11. ZOLOFT [Concomitant]
  12. PRILOSEC [Concomitant]

REACTIONS (4)
  - Pneumonia [None]
  - Local swelling [Not Recovered/Not Resolved]
  - Oedema [Not Recovered/Not Resolved]
  - Arthralgia [None]
